FAERS Safety Report 11668005 (Version 3)
Quarter: 2015Q4

REPORT INFORMATION
  Report Type: Report from Study
  Country: US (occurrence: None)
  Receive Date: 20151027
  Receipt Date: 20151201
  Transmission Date: 20160304
  Serious: Yes (Other)
  Sender: FDA-Public Use
  Company Number: US-MDT-ADR-2015-02032

PATIENT
  Age: 51 Year
  Sex: Female

DRUGS (2)
  1. MORPHINE INTRATHECAL 1.0MG/ML [Suspect]
     Active Substance: MORPHINE
     Dosage: 0.3710 MG/DAY
  2. COMPOUNDED BACLOFEN INTRATHECAL 150MCG/ML [Suspect]
     Active Substance: BACLOFEN
     Dosage: 55.64 MCG/DAY

REACTIONS (2)
  - Pain [None]
  - Hypoaesthesia [None]
